FAERS Safety Report 8792076 (Version 3)
Quarter: 2012Q4

REPORT INFORMATION
  Report Type: 
  Country: JP (occurrence: JP)
  Receive Date: 20120918
  Receipt Date: 20121116
  Transmission Date: 20130627
  Serious: Yes (Life-Threatening, Hospitalization, Other)
  Sender: FDA-Public Use
  Company Number: JP-ASTRAZENECA-2012SE71967

PATIENT
  Age: 80 Year
  Sex: Male
  Weight: 67 kg

DRUGS (11)
  1. OMEPRAL [Suspect]
     Indication: GASTROOESOPHAGEAL REFLUX DISEASE
     Route: 048
     Dates: start: 2009
  2. DOGMATYL [Suspect]
     Route: 065
  3. DIOVAN [Concomitant]
     Route: 048
  4. ALOSITOL [Concomitant]
     Route: 048
  5. BUFFERIN [Concomitant]
     Route: 048
  6. MAINTATE [Concomitant]
     Route: 048
  7. PLAVIX [Concomitant]
     Route: 048
  8. NORVASC [Concomitant]
     Route: 048
  9. MAGNESIUM SULFATE HYDRATE [Concomitant]
     Route: 048
  10. URIEF [Concomitant]
     Route: 048
  11. AVOLVE [Concomitant]
     Route: 048

REACTIONS (7)
  - Inappropriate antidiuretic hormone secretion [Unknown]
  - Bundle branch block right [Unknown]
  - Altered state of consciousness [Unknown]
  - Hyponatraemia [Recovering/Resolving]
  - Anxiety [Unknown]
  - Decreased appetite [Unknown]
  - Malaise [Unknown]
